FAERS Safety Report 25346146 (Version 3)
Quarter: 2025Q2

REPORT INFORMATION
  Report Type: Spontaneous
  Country: US (occurrence: US)
  Receive Date: 20250522
  Receipt Date: 20250606
  Transmission Date: 20250717
  Serious: No
  Sender: ROCHE
  Company Number: US-ROCHE-10000286225

PATIENT
  Sex: Female

DRUGS (16)
  1. ERIVEDGE [Suspect]
     Active Substance: VISMODEGIB
     Indication: Basal cell carcinoma
     Route: 048
  2. ERIVEDGE [Suspect]
     Active Substance: VISMODEGIB
     Route: 048
  3. ACETAMINOPHEN POW [Concomitant]
  4. ALBUTEROL SU [Concomitant]
  5. ASPIRIN TBE [Concomitant]
  6. ASPIRIN TBE [Concomitant]
  7. CALCIUM [Concomitant]
     Active Substance: CALCIUM
  8. CALCIUM [Concomitant]
     Active Substance: CALCIUM
  9. OMEPRAZOLE [Concomitant]
     Active Substance: OMEPRAZOLE
  10. OMEPRAZOLE [Concomitant]
     Active Substance: OMEPRAZOLE
  11. VITAMIN D3 [Concomitant]
     Active Substance: CHOLECALCIFEROL
  12. GABAPENTIN [Concomitant]
     Active Substance: GABAPENTIN
  13. GABAPENTIN [Concomitant]
     Active Substance: GABAPENTIN
  14. MELOXICAM [Concomitant]
     Active Substance: MELOXICAM
  15. MELOXICAM [Concomitant]
     Active Substance: MELOXICAM
  16. TRELEGY ELLIPTA [Concomitant]
     Active Substance: FLUTICASONE FUROATE\UMECLIDINIUM BROMIDE\VILANTEROL TRIFENATATE

REACTIONS (3)
  - Muscle spasms [Not Recovered/Not Resolved]
  - Dyspepsia [Not Recovered/Not Resolved]
  - Muscle spasms [Not Recovered/Not Resolved]
